FAERS Safety Report 6027367-5 (Version None)
Quarter: 2009Q1

REPORT INFORMATION
  Report Type: 
  Country: None (occurrence: None)
  Receive Date: 20090105
  Receipt Date: 20081230
  Transmission Date: 20090719
  Serious: Yes (Other)
  Sender: FDA-Public Use
  Company Number: B0552272A

PATIENT
  Age: 77 Year
  Sex: Female

DRUGS (3)
  1. DILATREND [Suspect]
     Indication: ESSENTIAL HYPERTENSION
     Dosage: 25MG PER DAY
     Route: 048
     Dates: start: 19940101, end: 20081019
  2. CYCLOSPORINE [Suspect]
     Indication: HEART TRANSPLANT
     Dates: start: 19940101, end: 20081019
  3. OMEPRAZOLE [Concomitant]
     Route: 065
     Dates: start: 20040101, end: 20081019

REACTIONS (4)
  - ABDOMINAL PAIN UPPER [None]
  - BLOOD CREATININE INCREASED [None]
  - BLOOD UREA INCREASED [None]
  - LOSS OF CONSCIOUSNESS [None]
